FAERS Safety Report 17272786 (Version 1)
Quarter: 2020Q1

REPORT INFORMATION
  Report Type: Spontaneous
  Country: US (occurrence: US)
  Receive Date: 20200115
  Receipt Date: 20200115
  Transmission Date: 20200409
  Serious: Yes (Hospitalization, Disabling)
  Sender: FDA-Public Use
  Company Number: None

PATIENT
  Age: 58 Year
  Sex: Female
  Weight: 61.2 kg

DRUGS (1)
  1. ATORVASTATIN 10 MG [Suspect]
     Active Substance: ATORVASTATIN
     Indication: BLOOD CHOLESTEROL
     Dosage: ?          QUANTITY:90 TABLET(S);?
     Route: 048
     Dates: start: 20170623, end: 20200114

REACTIONS (7)
  - Abdominal discomfort [None]
  - Facial bones fracture [None]
  - Disturbance in attention [None]
  - Fatigue [None]
  - Syncope [None]
  - Memory impairment [None]
  - Loss of personal independence in daily activities [None]

NARRATIVE: CASE EVENT DATE: 20200114
